FAERS Safety Report 8102822-2 (Version None)
Quarter: 2011Q4

REPORT INFORMATION
  Report Type: 
  Country: None (occurrence: None)
  Receive Date: 20111222
  Receipt Date: 20111011
  Transmission Date: 20120403
  Serious: Yes (Hospitalization)
  Sender: FDA-Public Use
  Company Number: UTC-011116

PATIENT
  Age: 69 Year
  Sex: Female
  Weight: 63.64 kg

DRUGS (6)
  1. LANOXIN [Concomitant]
  2. TYVASO [Suspect]
     Indication: PULMONARY HYPERTENSION
     Dosage: 216 MCG (54 MCG, 4 IN 1 D), INHALATION
     Route: 055
     Dates: start: 20091105, end: 20110922
  3. LETAIRIS [Concomitant]
  4. COUMADIN [Concomitant]
  5. DIURETICS (DIURETICS) [Concomitant]
  6. ACIPHEX [Concomitant]

REACTIONS (1)
  - GASTROINTESTINAL HAEMORRHAGE [None]
